FAERS Safety Report 24716803 (Version 1)
Quarter: 2024Q4

REPORT INFORMATION
  Report Type: Report from Study
  Country: US (occurrence: US)
  Receive Date: 20241210
  Receipt Date: 20241210
  Transmission Date: 20250115
  Serious: Yes (Other)
  Sender: ABBVIE
  Company Number: US-ABBVIE-5995557

PATIENT
  Age: 18 Year
  Sex: Female
  Weight: 56 kg

DRUGS (5)
  1. RISANKIZUMAB [Suspect]
     Active Substance: RISANKIZUMAB
     Indication: Crohn^s disease
     Route: 042
     Dates: start: 20240814, end: 20241009
  2. RISANKIZUMAB [Suspect]
     Active Substance: RISANKIZUMAB
     Route: 058
     Dates: start: 20241106
  3. BENTYL [Concomitant]
     Active Substance: DICYCLOMINE HYDROCHLORIDE
     Indication: Pain prophylaxis
  4. ZOLOFT [Concomitant]
     Active Substance: SERTRALINE HYDROCHLORIDE
     Indication: Depression
  5. OPILL [Concomitant]
     Active Substance: NORGESTREL
     Indication: Contraception

REACTIONS (19)
  - Presyncope [Recovered/Resolved]
  - Haematocrit decreased [Not Recovered/Not Resolved]
  - Malaise [Unknown]
  - Confusional state [Recovered/Resolved]
  - Pallor [Recovered/Resolved]
  - Mean cell haemoglobin decreased [Not Recovered/Not Resolved]
  - Red cell distribution width decreased [Not Recovered/Not Resolved]
  - Head injury [Unknown]
  - Platelet count increased [Not Recovered/Not Resolved]
  - Incoherent [Unknown]
  - Haemoglobin decreased [Not Recovered/Not Resolved]
  - Retching [Unknown]
  - Dyspnoea [Unknown]
  - Wrong technique in product usage process [Not Recovered/Not Resolved]
  - Cognitive disorder [Unknown]
  - Aggression [Recovered/Resolved]
  - White blood cell count increased [Not Recovered/Not Resolved]
  - Carbon dioxide decreased [Not Recovered/Not Resolved]
  - Mean cell volume decreased [Not Recovered/Not Resolved]

NARRATIVE: CASE EVENT DATE: 20241106
